FAERS Safety Report 19196331 (Version 4)
Quarter: 2021Q3

REPORT INFORMATION
  Report Type: Spontaneous
  Country: US (occurrence: US)
  Receive Date: 20210429
  Receipt Date: 20210729
  Transmission Date: 20211014
  Serious: Yes (Other)
  Sender: FDA-Public Use
  Company Number: US-NOVOPROD-806260

PATIENT
  Age: 75 Year
  Sex: Male

DRUGS (3)
  1. RYBELSUS [Suspect]
     Active Substance: SEMAGLUTIDE
     Indication: TYPE 2 DIABETES MELLITUS
     Dosage: 3 MG, QD
     Route: 048
     Dates: start: 202101, end: 2021
  2. RYBELSUS [Suspect]
     Active Substance: SEMAGLUTIDE
     Dosage: 14 MG, QD
     Route: 048
     Dates: start: 2021, end: 202104
  3. RYBELSUS [Suspect]
     Active Substance: SEMAGLUTIDE
     Dosage: 6 MG, QD
     Route: 048
     Dates: start: 2021, end: 2021

REACTIONS (12)
  - Dysphagia [Recovering/Resolving]
  - Decreased appetite [Recovered/Resolved]
  - Vomiting projectile [Recovered/Resolved]
  - Diabetes mellitus inadequate control [Unknown]
  - Headache [Recovered/Resolved]
  - Asthenia [Recovered/Resolved]
  - Weight decreased [Recovering/Resolving]
  - Diarrhoea [Recovered/Resolved]
  - Rash [Recovering/Resolving]
  - Constipation [Recovered/Resolved]
  - Type 1 diabetes mellitus [Recovering/Resolving]
  - Off label use [Recovered/Resolved]

NARRATIVE: CASE EVENT DATE: 2021
